FAERS Safety Report 17327559 (Version 2)
Quarter: 2020Q2

REPORT INFORMATION
  Report Type: Spontaneous
  Country: AU (occurrence: AU)
  Receive Date: 20200127
  Receipt Date: 20200527
  Transmission Date: 20200713
  Serious: Yes (Other)
  Sender: FDA-Public Use
  Company Number: AU-MYLANLABS-2020M1008289

PATIENT
  Age: 35 Year
  Sex: Male

DRUGS (1)
  1. CLOZARIL [Suspect]
     Active Substance: CLOZAPINE
     Indication: SCHIZOPHRENIA
     Dosage: UNK
     Route: 048
     Dates: start: 20180131

REACTIONS (4)
  - Electrocardiogram abnormal [Unknown]
  - Sinus bradycardia [Unknown]
  - Bundle branch block right [Unknown]
  - Sinus arrhythmia [Unknown]

NARRATIVE: CASE EVENT DATE: 20200121
